FAERS Safety Report 10410010 (Version 1)
Quarter: 2014Q3

REPORT INFORMATION
  Report Type: Spontaneous
  Country: GB (occurrence: GB)
  Receive Date: 20140826
  Receipt Date: 20140826
  Transmission Date: 20150326
  Serious: Yes (Hospitalization)
  Sender: FDA-Public Use
  Company Number: GB-TEVA-502623ISR

PATIENT
  Age: 56 Year
  Sex: Male

DRUGS (2)
  1. METHOTREXATE [Suspect]
     Active Substance: METHOTREXATE
  2. ENBREL [Suspect]
     Active Substance: ETANERCEPT

REACTIONS (3)
  - Fall [Unknown]
  - Sepsis [Unknown]
  - Limb injury [Unknown]
